FAERS Safety Report 8170863-5 (Version None)
Quarter: 2012Q1

REPORT INFORMATION
  Report Type: 
  Country: None (occurrence: None)
  Receive Date: 20120106
  Receipt Date: 20110408
  Transmission Date: 20120608
  Serious: Yes (Hospitalization)
  Sender: FDA-Public Use
  Company Number: US-005948

PATIENT
  Age: 50 Year
  Sex: Female
  Weight: 67.7 kg

DRUGS (7)
  1. TIZAMDINE [Concomitant]
  2. PAXIL [Concomitant]
  3. VICODIN [Concomitant]
  4. XANAX [Concomitant]
  5. MULTIHANCE [Suspect]
     Indication: NUCLEAR MAGNETIC RESONANCE IMAGING BRAIN
     Dosage: 13ML ONCE INTRAVENOUS (NOT OTHERWISE SPECIFIED)
     Route: 042
     Dates: start: 20110218, end: 20110218
  6. MULTIHANCE [Suspect]
     Indication: CONVULSION
     Dosage: 13ML ONCE INTRAVENOUS (NOT OTHERWISE SPECIFIED)
     Route: 042
     Dates: start: 20110218, end: 20110218
  7. TENORMIN [Concomitant]

REACTIONS (2)
  - GRAND MAL CONVULSION [None]
  - ACUTE MYOCARDIAL INFARCTION [None]
